FAERS Safety Report 14127747 (Version 2)
Quarter: 2018Q1

REPORT INFORMATION
  Report Type: Report from Study
  Country: CH (occurrence: CH)
  Receive Date: 20171026
  Receipt Date: 20180102
  Transmission Date: 20180508
  Serious: Yes (Other)
  Sender: FDA-Public Use
  Company Number: CH-ROCHE-2013797

PATIENT
  Sex: Male
  Weight: 2.83 kg

DRUGS (2)
  1. HEPARIN [Concomitant]
     Active Substance: HEPARIN SODIUM
  2. ALTEPLASE. [Suspect]
     Active Substance: ALTEPLASE
     Indication: RENAL VEIN THROMBOSIS
     Dosage: 0.1MG/KG AS BOLUS, FOLLOWED BY 0.3MG/KG OVER THREE HOURS
     Route: 065

REACTIONS (1)
  - Intraventricular haemorrhage [Unknown]
